FAERS Safety Report 16808640 (Version 1)
Quarter: 2019Q3

REPORT INFORMATION
  Report Type: Spontaneous
  Country: US (occurrence: US)
  Receive Date: 20190724
  Receipt Date: 20190724
  Transmission Date: 20191005
  Serious: No
  Sender: FDA-Public Use
  Company Number: None

PATIENT

DRUGS (1)
  1. AMIODARONE INJECTION [Suspect]
     Active Substance: AMIODARONE

REACTIONS (2)
  - Drug monitoring procedure incorrectly performed [None]
  - Incorrect dose administered [None]
